FAERS Safety Report 12970469 (Version 1)
Quarter: 2016Q4

REPORT INFORMATION
  Report Type: Spontaneous
  Country: US (occurrence: US)
  Receive Date: 20161122
  Receipt Date: 20161122
  Transmission Date: 20170207
  Serious: Yes (Other)
  Sender: FDA-Public Use
  Company Number: None

PATIENT
  Age: 78 Year
  Sex: Female

DRUGS (1)
  1. REVLIMID [Suspect]
     Active Substance: LENALIDOMIDE
     Indication: WALDENSTROM^S MACROGLOBULINAEMIA
     Dosage: 10MG DAILY X21D/28D ORAL  2 CYCLES
     Route: 048

REACTIONS (2)
  - Drug ineffective [None]
  - Fluid retention [None]

NARRATIVE: CASE EVENT DATE: 20120605
